FAERS Safety Report 9135411 (Version 1)
Quarter: 2013Q1

REPORT INFORMATION
  Report Type: Spontaneous
  Country: US (occurrence: US)
  Receive Date: 20130304
  Receipt Date: 20130304
  Transmission Date: 20140127
  Serious: No
  Sender: FDA-Public Use
  Company Number: US-ENDO PHARMACEUTICALS INC.-ENDC20110126

PATIENT
  Sex: Female
  Weight: 136.2 kg

DRUGS (1)
  1. ENDOCET [Suspect]
     Indication: SPINAL PAIN
     Dosage: 30/975 MG
     Route: 048
     Dates: start: 201101

REACTIONS (4)
  - Crying [Unknown]
  - Nervousness [Unknown]
  - Depression [Unknown]
  - Diarrhoea [Unknown]
